FAERS Safety Report 14220603 (Version 2)
Quarter: 2018Q1

REPORT INFORMATION
  Report Type: Spontaneous
  Country: JP (occurrence: JP)
  Receive Date: 20171124
  Receipt Date: 20180330
  Transmission Date: 20180508
  Serious: Yes (Hospitalization)
  Sender: FDA-Public Use
  Company Number: PHJP2017JP034016

PATIENT
  Age: 31 Year
  Sex: Female

DRUGS (1)
  1. CARBAMAZEPINE. [Suspect]
     Active Substance: CARBAMAZEPINE
     Indication: PRODUCT USED FOR UNKNOWN INDICATION
     Dosage: 4000 MG, UNK
     Route: 048

REACTIONS (6)
  - Altered state of consciousness [Recovering/Resolving]
  - Drug level increased [Recovering/Resolving]
  - Intentional overdose [Unknown]
  - Unresponsive to stimuli [Recovering/Resolving]
  - Toxicity to various agents [Recovering/Resolving]
  - Coma [Recovering/Resolving]
